FAERS Safety Report 4843044-8 (Version None)
Quarter: 2005Q4

REPORT INFORMATION
  Report Type: 
  Country: None (occurrence: None)
  Receive Date: 20051130
  Receipt Date: 20051116
  Transmission Date: 20060501
  Serious: Yes (Death)
  Sender: FDA-Public Use
  Company Number: 12894

PATIENT
  Age: 56 Year
  Sex: Female

DRUGS (1)
  1. METHOTREXATE [Suspect]
     Indication: RHEUMATOID ARTHRITIS
     Dosage: 20 MG WEEKLY PO
     Route: 048

REACTIONS (5)
  - ACCIDENTAL OVERDOSE [None]
  - ERYSIPELAS [None]
  - INCORRECT DOSE ADMINISTERED [None]
  - PANCYTOPENIA [None]
  - SEPSIS [None]
